FAERS Safety Report 5254637-0 (Version None)
Quarter: 2007Q1

REPORT INFORMATION
  Report Type: 
  Country: None (occurrence: None)
  Receive Date: 20070302
  Receipt Date: 20070221
  Transmission Date: 20070707
  Serious: Yes (Hospitalization, Other)
  Sender: FDA-Public Use
  Company Number: SE-ABBOTT-06P-150-0343338-00

PATIENT
  Sex: Female

DRUGS (1)
  1. HUMIRA [Suspect]
     Indication: RHEUMATOID ARTHRITIS
     Route: 058
     Dates: start: 20040422, end: 20040622

REACTIONS (5)
  - ANGIOEDEMA [None]
  - C-REACTIVE PROTEIN INCREASED [None]
  - HYPERSENSITIVITY [None]
  - PYREXIA [None]
  - SWOLLEN TONGUE [None]
